FAERS Safety Report 9016455 (Version 2)
Quarter: 2013Q2

REPORT INFORMATION
  Report Type: Spontaneous
  Country: US (occurrence: BR)
  Receive Date: 20130116
  Receipt Date: 20130426
  Transmission Date: 20140414
  Serious: Yes (Other)
  Sender: FDA-Public Use
  Company Number: US-009507513-1301XAA004269

PATIENT
  Age: 3 Year
  Sex: Male
  Weight: 17 kg

DRUGS (6)
  1. SINGULAIR [Suspect]
     Dosage: 1 DF, QPM
     Route: 048
     Dates: start: 20110321
  2. AVAMYS [Suspect]
     Dosage: 1 DF, QPM
     Route: 045
     Dates: start: 20101202
  3. SERETIDE [Suspect]
     Indication: ASTHMA
     Dosage: 1 DF, BID
     Route: 055
     Dates: start: 20101202
  4. AEROLIN [Suspect]
     Indication: ASTHMA
     Dosage: 2 DF, Q4H
     Route: 055
     Dates: start: 20101202
  5. AEROLIN [Suspect]
     Dosage: 2 DF, Q8H
     Route: 055
  6. AEROLIN [Suspect]
     Dosage: 2 DF, BID
     Route: 055

REACTIONS (4)
  - Asthmatic crisis [Unknown]
  - Product quality issue [Unknown]
  - Drug ineffective [Not Recovered/Not Resolved]
  - Asthma [Not Recovered/Not Resolved]
